FAERS Safety Report 15684375 (Version 1)
Quarter: 2018Q4

REPORT INFORMATION
  Report Type: Spontaneous
  Country: JP (occurrence: JP)
  Receive Date: 20181204
  Receipt Date: 20181204
  Transmission Date: 20190205
  Serious: Yes (Hospitalization)
  Sender: FDA-Public Use
  Company Number: JP-EISAI MEDICAL RESEARCH-EC-2018-048669

PATIENT
  Age: 72 Year
  Sex: Male

DRUGS (2)
  1. LOXONIN [Concomitant]
     Active Substance: LOXOPROFEN SODIUM
     Indication: ABDOMINAL PAIN UPPER
     Dosage: UNKNOWN
     Route: 048
  2. LENVIMA [Suspect]
     Active Substance: LENVATINIB
     Indication: HEPATOCELLULAR CARCINOMA
     Dosage: UNKNOWN
     Route: 048

REACTIONS (2)
  - Abdominal pain upper [Unknown]
  - Hepatic function abnormal [Unknown]
